FAERS Safety Report 10759174 (Version 1)
Quarter: 2015Q1

REPORT INFORMATION
  Report Type: Report from Study
  Country: US (occurrence: US)
  Receive Date: 20150203
  Receipt Date: 20150203
  Transmission Date: 20150721
  Serious: Yes (Other)
  Sender: FDA-Public Use
  Company Number: US-ABBVIE-15P-163-1340606-00

PATIENT
  Age: 34 Year
  Sex: Female

DRUGS (2)
  1. HUMIRA [Suspect]
     Active Substance: ADALIMUMAB
     Route: 065
     Dates: start: 20150123, end: 20150123
  2. HUMIRA [Suspect]
     Active Substance: ADALIMUMAB
     Indication: CROHN^S DISEASE
     Route: 065
     Dates: start: 20150109, end: 20150109

REACTIONS (8)
  - Blindness unilateral [Not Recovered/Not Resolved]
  - Muscle twitching [Not Recovered/Not Resolved]
  - Hypoaesthesia [Recovered/Resolved]
  - Fatigue [Recovered/Resolved]
  - Paraesthesia [Unknown]
  - Pain [Recovered/Resolved]
  - Myalgia [Not Recovered/Not Resolved]
  - Hypoaesthesia [Unknown]

NARRATIVE: CASE EVENT DATE: 20150109
